FAERS Safety Report 20217622 (Version 1)
Quarter: 2021Q4

REPORT INFORMATION
  Report Type: Report from Study
  Country: BR (occurrence: BR)
  Receive Date: 20211222
  Receipt Date: 20211222
  Transmission Date: 20220304
  Serious: Yes (Other)
  Sender: FDA-Public Use
  Company Number: BR-NOVARTISPH-NVSC2021BR284515

PATIENT
  Age: 38 Year
  Sex: Female

DRUGS (6)
  1. ETANERCEPT [Suspect]
     Active Substance: ETANERCEPT
     Indication: Product used for unknown indication
     Dosage: UNK (START DATE: BEFORE COSENTYX)
     Route: 065
  2. COSENTYX [Suspect]
     Active Substance: SECUKINUMAB
     Indication: Product used for unknown indication
     Dosage: 300 MG
     Route: 065
     Dates: start: 20210625
  3. ALPRAZOLAM [Suspect]
     Active Substance: ALPRAZOLAM
     Indication: Depression
     Dosage: UNK
     Route: 065
  4. ALPRAZOLAM [Suspect]
     Active Substance: ALPRAZOLAM
     Indication: Anxiety
  5. HUMIRA [Suspect]
     Active Substance: ADALIMUMAB
     Indication: Product used for unknown indication
     Dosage: UNK
     Route: 065
  6. INFLIXIMAB [Suspect]
     Active Substance: INFLIXIMAB
     Indication: Product used for unknown indication
     Dosage: UNK
     Route: 065

REACTIONS (16)
  - Psoriatic arthropathy [Unknown]
  - Hand deformity [Unknown]
  - Foot deformity [Unknown]
  - Neck deformity [Unknown]
  - Posture abnormal [Unknown]
  - Hypertension [Recovered/Resolved]
  - Spinal osteoarthritis [Unknown]
  - Movement disorder [Unknown]
  - Arthritis [Unknown]
  - Gait disturbance [Recovering/Resolving]
  - Bacterial test [Recovering/Resolving]
  - Dysuria [Recovering/Resolving]
  - Rash [Recovering/Resolving]
  - Urine odour abnormal [Not Recovered/Not Resolved]
  - Loss of personal independence in daily activities [Recovered/Resolved]
  - Psoriasis [Unknown]

NARRATIVE: CASE EVENT DATE: 20210301
